FAERS Safety Report 23450664 (Version 1)
Quarter: 2024Q1

REPORT INFORMATION
  Report Type: Spontaneous
  Country: DK (occurrence: DK)
  Receive Date: 20240129
  Receipt Date: 20240129
  Transmission Date: 20240410
  Serious: Yes (Life-Threatening, Hospitalization)
  Sender: FDA-Public Use
  Company Number: None

PATIENT
  Age: 82 Year
  Sex: Male
  Weight: 76 kg

DRUGS (1)
  1. CANAGLIFLOZIN [Suspect]
     Active Substance: CANAGLIFLOZIN
     Indication: Diabetes mellitus
     Dosage: STRENGTH: 100 MG
     Route: 048
     Dates: start: 2019, end: 2023

REACTIONS (3)
  - Fungaemia [Not Recovered/Not Resolved]
  - Candida infection [Unknown]
  - General symptom [Unknown]

NARRATIVE: CASE EVENT DATE: 20240101
